FAERS Safety Report 7629354-X (Version None)
Quarter: 2011Q3

REPORT INFORMATION
  Report Type: 
  Country: None (occurrence: None)
  Receive Date: 20110722
  Receipt Date: 20110713
  Transmission Date: 20111222
  Serious: Yes (Other)
  Sender: FDA-Public Use
  Company Number: CA-JNJFOC-20110705867

PATIENT
  Sex: Female
  Weight: 83.46 kg

DRUGS (3)
  1. STELARA [Suspect]
     Route: 058
     Dates: start: 20100701
  2. CELEXA [Concomitant]
  3. STELARA [Suspect]
     Indication: PSORIASIS
     Route: 058
     Dates: start: 20100408

REACTIONS (2)
  - HYPERPARATHYROIDISM [None]
  - NEPHROLITHIASIS [None]
